FAERS Safety Report 10311064 (Version 1)
Quarter: 2014Q3

REPORT INFORMATION
  Report Type: Spontaneous
  Country: US (occurrence: None)
  Receive Date: 20140716
  Receipt Date: 20140716
  Transmission Date: 20150326
  Serious: Yes (Other)
  Sender: FDA-Public Use
  Company Number: None

PATIENT
  Age: 22 Year
  Sex: Female
  Weight: 79.5 kg

DRUGS (8)
  1. NALTREXONE [Suspect]
     Active Substance: NALTREXONE
     Indication: THERAPY CESSATION
     Route: 048
     Dates: start: 20140704, end: 20140707
  2. NALTREXONE [Suspect]
     Active Substance: NALTREXONE
     Indication: DRUG DEPENDENCE
     Route: 048
     Dates: start: 20140704, end: 20140707
  3. BACLOFEN. [Concomitant]
     Active Substance: BACLOFEN
  4. CLONIDINE. [Concomitant]
     Active Substance: CLONIDINE
  5. REMERON [Concomitant]
     Active Substance: MIRTAZAPINE
  6. BACTRIM DS [Concomitant]
     Active Substance: SULFAMETHOXAZOLE\TRIMETHOPRIM
  7. NEURONTIN [Concomitant]
     Active Substance: GABAPENTIN
  8. TRAZODONE [Concomitant]
     Active Substance: TRAZODONE HYDROCHLORIDE

REACTIONS (3)
  - Nausea [None]
  - Diarrhoea [None]
  - Abdominal discomfort [None]

NARRATIVE: CASE EVENT DATE: 20140705
